FAERS Safety Report 7929290-5 (Version None)
Quarter: 2011Q4

REPORT INFORMATION
  Report Type: 
  Country: None (occurrence: None)
  Receive Date: 20111121
  Receipt Date: 20111115
  Transmission Date: 20120403
  Serious: No
  Sender: FDA-Public Use
  Company Number: US-BIOGENIDEC-2011BI040280

PATIENT
  Sex: Female

DRUGS (1)
  1. TYSABRI [Suspect]
     Indication: MULTIPLE SCLEROSIS
     Route: 042
     Dates: start: 20110902

REACTIONS (6)
  - MULTIPLE SCLEROSIS RELAPSE [None]
  - FATIGUE [None]
  - MENSTRUATION IRREGULAR [None]
  - HEART RATE INCREASED [None]
  - AMENORRHOEA [None]
  - MOBILITY DECREASED [None]
